FAERS Safety Report 4423825-5 (Version None)
Quarter: 2004Q3

REPORT INFORMATION
  Report Type: 
  Country: None (occurrence: None)
  Receive Date: 20040715
  Receipt Date: 20030627
  Transmission Date: 20050211
  Serious: Yes (Other)
  Sender: FDA-Public Use
  Company Number: HQWYE806201JUL03

PATIENT
  Sex: Female

DRUGS (1)
  1. MYLOTARG [Suspect]

REACTIONS (1)
  - DRUG INEFFECTIVE [None]
